FAERS Safety Report 8796389 (Version 1)
Quarter: 2012Q4

REPORT INFORMATION
  Report Type: 
  Country: US (occurrence: US)
  Receive Date: 20120919
  Receipt Date: 20120919
  Transmission Date: 20130627
  Serious: No
  Sender: FDA-Public Use
  Company Number: US-ASTRAZENECA-2012SE65152

PATIENT
  Age: 18782 Day
  Sex: Male
  Weight: 99.8 kg

DRUGS (12)
  1. NEXIUM [Suspect]
     Indication: GASTROOESOPHAGEAL REFLUX DISEASE
     Route: 048
     Dates: end: 2006
  2. NEXIUM [Suspect]
     Indication: GASTROOESOPHAGEAL REFLUX DISEASE
     Route: 048
     Dates: start: 2007
  3. NEXIUM [Suspect]
     Indication: GASTROOESOPHAGEAL REFLUX DISEASE
     Route: 048
     Dates: start: 20120827
  4. OMEPRAZOLE [Suspect]
     Indication: GASTROOESOPHAGEAL REFLUX DISEASE
     Route: 048
  5. OMEPRAZOLE [Suspect]
     Indication: GASTROOESOPHAGEAL REFLUX DISEASE
     Route: 048
  6. OMEPRAZOLE [Suspect]
     Indication: GASTROOESOPHAGEAL REFLUX DISEASE
     Route: 048
  7. EFFIENT [Concomitant]
     Indication: CARDIAC DISORDER
  8. NORVASC [Concomitant]
     Indication: HYPERTENSION
  9. LIPITOR [Concomitant]
     Indication: BLOOD CHOLESTEROL
  10. COLCRYS [Concomitant]
     Indication: URTICARIA
  11. ALTACE [Concomitant]
  12. PLAVIX [Concomitant]

REACTIONS (7)
  - Cardiac disorder [Unknown]
  - Gastric disorder [Unknown]
  - Chest pain [Unknown]
  - Hiatus hernia [Unknown]
  - Blood cholesterol abnormal [Unknown]
  - Off label use [Unknown]
  - Drug ineffective [Unknown]
